FAERS Safety Report 7039151-4 (Version None)
Quarter: 2010Q4

REPORT INFORMATION
  Report Type: 
  Country: None (occurrence: None)
  Receive Date: 20101012
  Receipt Date: 20100929
  Transmission Date: 20110411
  Serious: Yes (Other)
  Sender: FDA-Public Use
  Company Number: PHEH2006US15191

PATIENT
  Sex: Male

DRUGS (15)
  1. ZOMETA [Suspect]
     Dosage: UNK
     Dates: end: 20040101
  2. AREDIA [Suspect]
     Dosage: UNK
     Dates: start: 19980610
  3. PREDNISONE [Concomitant]
  4. PROSCAR [Concomitant]
  5. BIAXIN [Concomitant]
  6. THALIDOMIDE [Concomitant]
  7. FOLIC ACID [Concomitant]
  8. VITAMIN B6 [Concomitant]
  9. IRON [Concomitant]
  10. ALKERAN [Concomitant]
  11. NORVASC [Concomitant]
  12. VELCADE [Concomitant]
  13. DEXAMETHASONE [Concomitant]
  14. ASPIRIN [Concomitant]
  15. VITAMIN B-12 [Concomitant]

REACTIONS (31)
  - ACTINIC KERATOSIS [None]
  - ANAEMIA [None]
  - ANXIETY [None]
  - AORTIC VALVE CALCIFICATION [None]
  - BASAL CELL CARCINOMA [None]
  - DECREASED INTEREST [None]
  - DYSPLASTIC NAEVUS SYNDROME [None]
  - FISTULA [None]
  - GENERAL PHYSICAL HEALTH DETERIORATION [None]
  - INGUINAL HERNIA [None]
  - INSOMNIA [None]
  - LESION EXCISION [None]
  - LIMB CRUSHING INJURY [None]
  - MICROGRAPHIC SKIN SURGERY [None]
  - MITRAL VALVE INCOMPETENCE [None]
  - NEOPLASM MALIGNANT [None]
  - OSTEONECROSIS OF JAW [None]
  - PAIN [None]
  - PERICARDIAL EFFUSION [None]
  - PROSTATIC CALCIFICATION [None]
  - PSORIASIS [None]
  - SEBORRHOEIC KERATOSIS [None]
  - SUPRAVENTRICULAR EXTRASYSTOLES [None]
  - SYNOVIAL DISORDER [None]
  - TACHYCARDIA [None]
  - TENDON SHEATH INCISION [None]
  - TENOLYSIS [None]
  - TOOTH EXTRACTION [None]
  - TOOTH FRACTURE [None]
  - VENTRICULAR DYSFUNCTION [None]
  - VENTRICULAR EXTRASYSTOLES [None]
